FAERS Safety Report 4716844-2 (Version None)
Quarter: 2005Q3

REPORT INFORMATION
  Report Type: 
  Country: None (occurrence: None)
  Receive Date: 20050719
  Receipt Date: 20050709
  Transmission Date: 20060218
  Serious: Yes (Death)
  Sender: FDA-Public Use
  Company Number: GB-JNJFOC-20050702077

PATIENT
  Age: 13 Year
  Sex: Male
  Weight: 40 kg

DRUGS (2)
  1. TOPIRAMATE [Suspect]
     Route: 048
  2. LAMOTRIGINE [Suspect]
     Route: 048

REACTIONS (1)
  - MYOCARDITIS [None]
